FAERS Safety Report 13075349 (Version 2)
Quarter: 2017Q2

REPORT INFORMATION
  Report Type: Spontaneous
  Country: US (occurrence: US)
  Receive Date: 20161230
  Receipt Date: 20170506
  Transmission Date: 20170830
  Serious: No
  Sender: FDA-Public Use
  Company Number: US-TEVA-725497ACC

PATIENT
  Sex: Male

DRUGS (6)
  1. NAPROXEN. [Concomitant]
     Active Substance: NAPROXEN
  2. PANTOPRAZOLE [Concomitant]
     Active Substance: PANTOPRAZOLE
  3. AMLODIPINE [Concomitant]
     Active Substance: AMLODIPINE BESYLATE
  4. VALSARTAN. [Concomitant]
     Active Substance: VALSARTAN
  5. SYNRIBO [Suspect]
     Active Substance: OMACETAXINE MEPESUCCINATE
     Route: 065
     Dates: start: 20160226
  6. SENNA [Concomitant]
     Active Substance: SENNA LEAF\SENNOSIDES\SENNOSIDES A AND B

REACTIONS (4)
  - Injection site pain [Not Recovered/Not Resolved]
  - Injection site discolouration [Unknown]
  - Injection site erythema [Unknown]
  - Injection site bruising [Not Recovered/Not Resolved]

NARRATIVE: CASE EVENT DATE: 20160226
